FAERS Safety Report 6261677-1 (Version None)
Quarter: 2009Q3

REPORT INFORMATION
  Report Type: 
  Country: None (occurrence: None)
  Receive Date: 20090709
  Receipt Date: 20090618
  Transmission Date: 20100115
  Serious: Yes (Hospitalization)
  Sender: FDA-Public Use
  Company Number: FR-ROCHE-642132

PATIENT
  Age: 15 Year
  Sex: Male

DRUGS (4)
  1. CELLCEPT [Suspect]
     Indication: DRUG USE FOR UNKNOWN INDICATION
     Route: 065
  2. CELLCEPT [Suspect]
     Route: 065
     Dates: start: 20081230
  3. CORTICOSTEROIDS [Concomitant]
     Indication: DRUG USE FOR UNKNOWN INDICATION
     Route: 065
  4. CORTICOSTEROIDS [Concomitant]
     Dosage: DOSE REDUCED
     Route: 065

REACTIONS (3)
  - CELL DEATH [None]
  - HYPERTHERMIA [None]
  - PHARYNGITIS [None]
